FAERS Safety Report 6717773-5 (Version None)
Quarter: 2010Q2

REPORT INFORMATION
  Report Type: 
  Country: None (occurrence: None)
  Receive Date: 20100507
  Receipt Date: 20100507
  Transmission Date: 20101027
  Serious: Yes (Hospitalization)
  Sender: FDA-Public Use
  Company Number: None

PATIENT

DRUGS (1)
  1. SPIRONOLACTONE [Suspect]
     Indication: OEDEMA
     Dosage: 100 MG. DAILY PO
     Route: 048
     Dates: start: 20091230, end: 20100426

REACTIONS (1)
  - UNEVALUABLE EVENT [None]
